FAERS Safety Report 5765587-5 (Version None)
Quarter: 2008Q2

REPORT INFORMATION
  Report Type: 
  Country: None (occurrence: None)
  Receive Date: 20080606
  Receipt Date: 20080606
  Transmission Date: 20081010
  Serious: Yes (Death, Hospitalization)
  Sender: FDA-Public Use
  Company Number: None

PATIENT
  Sex: Female
  Weight: 110 kg

DRUGS (8)
  1. CYCLOPHOSPHAMIDE [Suspect]
     Dosage: 1100 MG
     Dates: end: 20061220
  2. TAXOTERE [Suspect]
     Dosage: 166 MG
     Dates: end: 20061220
  3. DOXORUBICIN HYDROCHLORIDE [Suspect]
     Dosage: 111 MG
     Dates: end: 20061220
  4. DECADRON [Concomitant]
  5. DIPHENHYDRAMINE HCL [Concomitant]
  6. NEULASTA [Concomitant]
  7. ONDANSETRON [Concomitant]
  8. RANITIDINE HCL [Concomitant]

REACTIONS (19)
  - ABDOMINAL TENDERNESS [None]
  - ACUTE RESPIRATORY DISTRESS SYNDROME [None]
  - ANOXIC ENCEPHALOPATHY [None]
  - APNOEA [None]
  - BLOOD BILIRUBIN INCREASED [None]
  - BLOOD PRESSURE DIASTOLIC DECREASED [None]
  - CARDIO-RESPIRATORY ARREST [None]
  - ELECTROMECHANICAL DISSOCIATION [None]
  - INTESTINAL INFARCTION [None]
  - ISCHAEMIC HEPATITIS [None]
  - PLATELET COUNT DECREASED [None]
  - PULMONARY OEDEMA [None]
  - RENAL FAILURE [None]
  - RESPIRATORY RATE INCREASED [None]
  - SEPSIS SYNDROME [None]
  - SYSTEMIC CANDIDA [None]
  - SYSTEMIC MYCOSIS [None]
  - TACHYCARDIA [None]
  - WHITE BLOOD CELL COUNT DECREASED [None]
